FAERS Safety Report 14186481 (Version 1)
Quarter: 2017Q4

REPORT INFORMATION
  Report Type: Spontaneous
  Country: US (occurrence: US)
  Receive Date: 20171114
  Receipt Date: 20171114
  Transmission Date: 20180321
  Serious: Yes (Other)
  Sender: FDA-Public Use
  Company Number: US-PFIZER INC-2017486677

PATIENT
  Age: 60 Year
  Sex: Female
  Weight: 89.81 kg

DRUGS (10)
  1. LETROZOLE. [Suspect]
     Active Substance: LETROZOLE
     Indication: BREAST CANCER METASTATIC
     Dosage: 2.5 MG, 1X/DAY(2.5MG TABLET BY MOUTH ONCE DAILY)
     Route: 048
     Dates: start: 201707
  2. MELOXICAM. [Concomitant]
     Active Substance: MELOXICAM
     Indication: OSTEOARTHRITIS
     Dosage: 15 MG, 1X/DAY
  3. OXYCODONE [Concomitant]
     Active Substance: OXYCODONE
     Indication: PAIN
     Dosage: 30 MG, EVERY 4 HOURS AS NEEDED WITH MAX DOSE: 180MG PER DAY.  TAKING FOR 13 MONTHS
  4. DIAZEPAM. [Concomitant]
     Active Substance: DIAZEPAM
     Indication: ANXIETY
     Dosage: 10MG UP TO THREE TIMES PER DAY
  5. DIAZEPAM. [Concomitant]
     Active Substance: DIAZEPAM
     Indication: BIPOLAR DISORDER
  6. IBRANCE [Suspect]
     Active Substance: PALBOCICLIB
     Indication: BREAST CANCER METASTATIC
     Dosage: 125 MG, CYCLIC/125MG CAPSULE BY MOUTH 21 DAYS ON AND 7 DAYS OFF
     Route: 048
     Dates: start: 201707
  7. TOPIRAMATE. [Concomitant]
     Active Substance: TOPIRAMATE
     Indication: BIPOLAR DISORDER
     Dosage: 200 MG, 2X/DAY/FOUR 50MG TWICE DAILY
     Dates: start: 2006
  8. VITAMIN B12 [Concomitant]
     Active Substance: CYANOCOBALAMIN
     Indication: SUPPLEMENTATION THERAPY
     Dosage: 2000 MG, 1X/DAY
  9. MORPHINE [Concomitant]
     Active Substance: MORPHINE
     Indication: PAIN
     Dosage: 100 MG, EVERY 12 HOURS
     Dates: start: 2017
  10. XGEVA [Concomitant]
     Active Substance: DENOSUMAB
     Indication: BONE DENSITY DECREASED
     Dosage: INJECTION ONCE PER MONTH
     Dates: start: 201708

REACTIONS (9)
  - Swelling [Recovering/Resolving]
  - Rash [Recovering/Resolving]
  - Confusional state [Not Recovered/Not Resolved]
  - Pruritus [Recovering/Resolving]
  - Blister [Recovering/Resolving]
  - Rash pustular [Recovering/Resolving]
  - Memory impairment [Not Recovered/Not Resolved]
  - Haemorrhage [Recovering/Resolving]
  - Pain [Recovering/Resolving]

NARRATIVE: CASE EVENT DATE: 20171024
